FAERS Safety Report 5825546-0 (Version None)
Quarter: 2008Q3

REPORT INFORMATION
  Report Type: 
  Country: None (occurrence: None)
  Receive Date: 20080729
  Receipt Date: 20080722
  Transmission Date: 20090109
  Serious: Yes (Other)
  Sender: FDA-Public Use
  Company Number: BR-ASTRAZENECA-2008UW14526

PATIENT
  Age: 62 Year
  Sex: Male
  Weight: 96.1 kg

DRUGS (11)
  1. CRESTOR [Suspect]
     Route: 048
     Dates: start: 20080527, end: 20080617
  2. RANEXA [Suspect]
     Indication: ANGINA PECTORIS
     Route: 065
     Dates: start: 20080602, end: 20080617
  3. RANEXA [Suspect]
     Route: 065
     Dates: start: 20080601
  4. COLCHICINE [Suspect]
     Indication: GOUT
     Route: 065
     Dates: start: 20080606, end: 20080617
  5. COLCHICINE [Suspect]
     Route: 065
     Dates: start: 20080708
  6. NORVASC [Concomitant]
     Dates: start: 20080527
  7. AVAPRO [Concomitant]
  8. ACETYLSALICYLIC ACID SRT [Concomitant]
  9. TOPROL-XL [Concomitant]
  10. PLAVIX [Concomitant]
  11. PRILOSEC [Concomitant]
     Route: 048

REACTIONS (5)
  - DIARRHOEA [None]
  - GOUT [None]
  - HEPATIC STEATOSIS [None]
  - HEPATITIS [None]
  - HYPOTENSION [None]
